FAERS Safety Report 22356178 (Version 2)
Quarter: 2023Q2

REPORT INFORMATION
  Report Type: Spontaneous
  Country: JP (occurrence: JP)
  Receive Date: 20230523
  Receipt Date: 20230614
  Transmission Date: 20230722
  Serious: Yes (Hospitalization)
  Sender: FDA-Public Use
  Company Number: JP-BAYER-2023A064883

PATIENT
  Age: 78 Year
  Sex: Female
  Weight: 40 kg

DRUGS (5)
  1. STIVARGA [Suspect]
     Active Substance: REGORAFENIB
     Indication: Chemotherapy
     Dosage: 80 MG, QD
     Route: 048
     Dates: start: 20230202
  2. STIVARGA [Suspect]
     Active Substance: REGORAFENIB
     Indication: Chemotherapy
     Dosage: 80 MG, QD
     Route: 048
     Dates: start: 20230302, end: 20230327
  3. LAFUTIDINE [Concomitant]
     Active Substance: LAFUTIDINE
     Dosage: UNK
     Route: 048
     Dates: start: 20220829
  4. ADALAT CC [Concomitant]
     Active Substance: NIFEDIPINE
     Dosage: UNK
     Route: 048
     Dates: start: 20230202
  5. LONSURF [Concomitant]
     Active Substance: TIPIRACIL HYDROCHLORIDE\TRIFLURIDINE
     Dosage: UNK
     Route: 048
     Dates: start: 20221013, end: 20230116

REACTIONS (1)
  - Hepatic function abnormal [Recovering/Resolving]

NARRATIVE: CASE EVENT DATE: 20230327
